FAERS Safety Report 5453473-X (Version None)
Quarter: 2007Q3

REPORT INFORMATION
  Report Type: 
  Country: None (occurrence: None)
  Receive Date: 20070913
  Receipt Date: 20070904
  Transmission Date: 20080115
  Serious: No
  Sender: FDA-Public Use
  Company Number: TPA2007A01851

PATIENT
  Age: 69 Year
  Sex: Female
  Weight: 61.2356 kg

DRUGS (3)
  1. ROZEREM [Suspect]
     Indication: INITIAL INSOMNIA
     Dosage: HS, PER ORAL
     Route: 048
     Dates: start: 20070828, end: 20070902
  2. DIGOXIN [Concomitant]
  3. TOPROL-XL [Concomitant]

REACTIONS (2)
  - INSOMNIA [None]
  - TREATMENT NONCOMPLIANCE [None]
